FAERS Safety Report 8430510-1 (Version None)
Quarter: 2012Q2

REPORT INFORMATION
  Report Type: 
  Country: None (occurrence: None)
  Receive Date: 20120612
  Receipt Date: 20120601
  Transmission Date: 20120825
  Serious: Yes (Other)
  Sender: FDA-Public Use
  Company Number: AR-JNJFOC-20120203772

PATIENT
  Age: 53 Year
  Sex: Female

DRUGS (6)
  1. ANTIALLERGIC DRUGS [Concomitant]
     Indication: PREMEDICATION
     Route: 065
  2. REMICADE [Suspect]
     Route: 042
     Dates: start: 20091201
  3. BENADRYL [Concomitant]
     Indication: PREMEDICATION
     Route: 065
  4. REMICADE [Suspect]
     Route: 042
     Dates: start: 20120529
  5. HYDROCORTISONE [Concomitant]
     Indication: PREMEDICATION
     Route: 065
  6. REMICADE [Suspect]
     Indication: RHEUMATOID ARTHRITIS
     Route: 042
     Dates: start: 20120315

REACTIONS (10)
  - TACHYCARDIA [None]
  - INFUSION RELATED REACTION [None]
  - INFLAMMATION [None]
  - CARDIAC OPERATION [None]
  - FEELING HOT [None]
  - GAIT DISTURBANCE [None]
  - DRUG INEFFECTIVE [None]
  - RHEUMATOID ARTHRITIS [None]
  - PAIN [None]
  - ASTHENIA [None]
